FAERS Safety Report 26093614 (Version 1)
Quarter: 2025Q4

REPORT INFORMATION
  Report Type: Spontaneous
  Country: US (occurrence: None)
  Receive Date: 20251126
  Receipt Date: 20251126
  Transmission Date: 20260118
  Serious: Yes (Other)
  Sender: UCB
  Company Number: US-UCBSA-2025041234

PATIENT
  Weight: 81.65 kg

DRUGS (28)
  1. ZILBRYSQ [Suspect]
     Active Substance: ZILUCOPLAN
     Indication: Myasthenia gravis
     Dosage: 32.4 MILLIGRAM, ONCE DAILY (QD)
  2. ZILBRYSQ [Suspect]
     Active Substance: ZILUCOPLAN
     Dosage: 32.4 MILLIGRAM, ONCE DAILY (QD)
  3. ARMOUR THYROID [Concomitant]
     Active Substance: THYROID, PORCINE
     Indication: Product used for unknown indication
  4. ASPIRIN [Concomitant]
     Active Substance: ASPIRIN
     Indication: Product used for unknown indication
  5. BIOTIN [Concomitant]
     Active Substance: BIOTIN
     Indication: Product used for unknown indication
  6. GABAPENTIN [Concomitant]
     Active Substance: GABAPENTIN
     Indication: Product used for unknown indication
  7. GINKGO [Concomitant]
     Active Substance: GINKGO
     Indication: Product used for unknown indication
  8. OZEMPIC [Concomitant]
     Active Substance: SEMAGLUTIDE
     Indication: Product used for unknown indication
  9. PYRIDOSTIGMINE [Concomitant]
     Active Substance: PYRIDOSTIGMINE
     Indication: Product used for unknown indication
  10. SERTRALINE [Concomitant]
     Active Substance: SERTRALINE HYDROCHLORIDE
     Indication: Product used for unknown indication
  11. TOUJEO [Concomitant]
     Active Substance: INSULIN GLARGINE
     Indication: Product used for unknown indication
  12. VITAMIN B12 [Concomitant]
     Active Substance: CYANOCOBALAMIN
     Indication: Product used for unknown indication
  13. VITAMIN D [Concomitant]
     Active Substance: VITAMIN D NOS
     Indication: Product used for unknown indication
  14. CLOPIDOGREL [Concomitant]
     Active Substance: CLOPIDOGREL BISULFATE
     Indication: Product used for unknown indication
  15. AMITRIPTYLINE [Concomitant]
     Active Substance: AMITRIPTYLINE
     Indication: Product used for unknown indication
  16. dicycomine [Concomitant]
     Indication: Product used for unknown indication
  17. ATORVASTATIN [Concomitant]
     Active Substance: ATORVASTATIN
     Indication: Product used for unknown indication
  18. prednisone, [Concomitant]
     Indication: Product used for unknown indication
  19. MESALAMINE [Concomitant]
     Active Substance: MESALAMINE
     Indication: Product used for unknown indication
  20. PANTOPRAZOLE [Concomitant]
     Active Substance: PANTOPRAZOLE
     Indication: Product used for unknown indication
  21. cholestryamine [Concomitant]
     Indication: Product used for unknown indication
  22. Vitamin C, [Concomitant]
     Indication: Product used for unknown indication
  23. ASIAN GINSENG [Concomitant]
     Active Substance: ASIAN GINSENG
     Indication: Product used for unknown indication
  24. ANASTROZOLE [Concomitant]
     Active Substance: ANASTROZOLE
     Indication: Product used for unknown indication
  25. EZETIMIBE [Concomitant]
     Active Substance: EZETIMIBE
     Indication: Product used for unknown indication
  26. TRIAMCINOLONE [Concomitant]
     Active Substance: TRIAMCINOLONE
     Indication: Product used for unknown indication
     Dosage: 1% CREAM
  27. CLOBETASOL [Concomitant]
     Active Substance: CLOBETASOL
     Indication: Product used for unknown indication
  28. GINKGO [Concomitant]
     Active Substance: GINKGO
     Indication: Product used for unknown indication

REACTIONS (3)
  - Scleroderma [Not Recovered/Not Resolved]
  - Asthenia [Recovering/Resolving]
  - Product dose omission issue [Unknown]
